FAERS Safety Report 6717696-1 (Version None)
Quarter: 2010Q2

REPORT INFORMATION
  Report Type: 
  Country: None (occurrence: None)
  Receive Date: 20100510
  Receipt Date: 20100429
  Transmission Date: 20101027
  Serious: Yes (Death)
  Sender: FDA-Public Use
  Company Number: AU-PFIZER INC-2010055867

PATIENT
  Age: 54 Year
  Sex: Male

DRUGS (2)
  1. SERTRALINE HCL [Suspect]
     Dosage: UNK
  2. HEROIN [Suspect]
     Indication: DRUG ABUSE
     Dosage: UNK
     Route: 042

REACTIONS (1)
  - NARCOTIC INTOXICATION [None]
